FAERS Safety Report 7966487-2 (Version None)
Quarter: 2011Q4

REPORT INFORMATION
  Report Type: 
  Country: None (occurrence: None)
  Receive Date: 20111208
  Receipt Date: 20111201
  Transmission Date: 20120403
  Serious: Yes (Other)
  Sender: FDA-Public Use
  Company Number: US-ROCHE-1018094

PATIENT
  Sex: Female

DRUGS (4)
  1. BONIVA [Suspect]
     Indication: OSTEITIS DEFORMANS
  2. FOSAMAX [Suspect]
     Indication: OSTEOPOROSIS
     Dates: start: 20030401, end: 20080101
  3. BONIVA [Suspect]
     Indication: OSTEOPOROSIS
     Dates: start: 20090301, end: 20100101
  4. FOSAMAX [Suspect]
     Indication: OSTEITIS DEFORMANS
     Dates: start: 20080201, end: 20090201

REACTIONS (7)
  - STRESS FRACTURE [None]
  - ANXIETY [None]
  - LOW TURNOVER OSTEOPATHY [None]
  - TOXICITY TO VARIOUS AGENTS [None]
  - BONE DISORDER [None]
  - FEMUR FRACTURE [None]
  - EMOTIONAL DISTRESS [None]
